FAERS Safety Report 19148497 (Version 1)
Quarter: 2021Q2

REPORT INFORMATION
  Report Type: Report from Study
  Country: CA (occurrence: CA)
  Receive Date: 20210416
  Receipt Date: 20210416
  Transmission Date: 20210717
  Serious: Yes (Hospitalization)
  Sender: FDA-Public Use
  Company Number: CA-EISAI MEDICAL RESEARCH-EC-2021-091151

PATIENT
  Age: 77 Year
  Sex: Male
  Weight: 82.9 kg

DRUGS (7)
  1. VITAMIN B1 [Concomitant]
     Active Substance: THIAMINE HYDROCHLORIDE
  2. LENVIMA [Suspect]
     Active Substance: LENVATINIB
     Indication: NEUROENDOCRINE CARCINOMA METASTATIC
     Route: 048
     Dates: start: 20200115, end: 20200214
  3. LENVIMA [Suspect]
     Active Substance: LENVATINIB
     Route: 048
     Dates: start: 20200928, end: 202011
  4. VITAMIN B12 [Concomitant]
     Active Substance: CYANOCOBALAMIN
  5. LENVIMA [Suspect]
     Active Substance: LENVATINIB
     Indication: GASTROINTESTINAL CARCINOMA
     Route: 048
     Dates: start: 20200229, end: 2020
  6. LENVIMA [Suspect]
     Active Substance: LENVATINIB
     Indication: NEUROENDOCRINE CARCINOMA
     Dosage: 10 MG ? 12 MG ALTERNATING DOSING EVERY DAY
     Route: 048
     Dates: start: 2020, end: 202009
  7. LENVIMA [Suspect]
     Active Substance: LENVATINIB
     Dosage: ALTERNATE BETWEEN 10 AND 12MG EVERY OTHER DAY.
     Route: 048
     Dates: end: 202104

REACTIONS (3)
  - Nausea [Unknown]
  - Vomiting [Unknown]
  - Abdominal pain upper [Unknown]

NARRATIVE: CASE EVENT DATE: 202104
